FAERS Safety Report 24619051 (Version 1)
Quarter: 2024Q4

REPORT INFORMATION
  Report Type: Spontaneous
  Country: US (occurrence: US)
  Receive Date: 20241114
  Receipt Date: 20241114
  Transmission Date: 20250114
  Serious: No
  Sender: CIPLA
  Company Number: US-CIPLA LTD.-2024US07019

PATIENT

DRUGS (1)
  1. GABAPENTIN [Suspect]
     Active Substance: GABAPENTIN
     Indication: Rotator cuff repair
     Dosage: 1 DOSAGE FORM, QD (ONE CAPSULE FOR FIVE NIGHTS FOR A WEEK)
     Route: 065

REACTIONS (1)
  - Off label use [Unknown]
